FAERS Safety Report 8054873-4 (Version None)
Quarter: 2012Q1

REPORT INFORMATION
  Report Type: 
  Country: None (occurrence: None)
  Receive Date: 20120112
  Receipt Date: 20111207
  Transmission Date: 20120608
  Serious: Yes (Hospitalization)
  Sender: FDA-Public Use
  Company Number: SE-024733

PATIENT
  Age: 69 Year
  Sex: Female

DRUGS (2)
  1. OFATUMUMAB [Suspect]
     Indication: CHRONIC LYMPHOCYTIC LEUKAEMIA
     Dosage: INTRAVENOUS (NOT OTHERWISE SPECIFIED)
     Route: 042
  2. CHLORAMBUCIL [Suspect]
     Indication: CHRONIC LYMPHOCYTIC LEUKAEMIA
     Dosage: 10 MG/M2 ORAL
     Route: 048
     Dates: start: 20110406

REACTIONS (3)
  - C-REACTIVE PROTEIN INCREASED [None]
  - FEBRILE NEUTROPENIA [None]
  - HAEMOPHILUS TEST POSITIVE [None]
